FAERS Safety Report 18468560 (Version 3)
Quarter: 2021Q2

REPORT INFORMATION
  Report Type: Spontaneous
  Country: US (occurrence: US)
  Receive Date: 20201105
  Receipt Date: 20210519
  Transmission Date: 20210717
  Serious: No
  Sender: FDA-Public Use
  Company Number: US-PFIZER INC-2020428001

PATIENT

DRUGS (1)
  1. DICLOFENAC EPOLAMINE [Suspect]
     Active Substance: DICLOFENAC EPOLAMINE
     Dosage: UNK

REACTIONS (7)
  - Burning sensation [Unknown]
  - Application site pain [Unknown]
  - Device adhesion issue [Unknown]
  - Urticaria [Unknown]
  - Drug ineffective [Unknown]
  - Pain [Not Recovered/Not Resolved]
  - Gait disturbance [Unknown]
